FAERS Safety Report 4644900-6 (Version None)
Quarter: 2005Q2

REPORT INFORMATION
  Report Type: 
  Country: None (occurrence: None)
  Receive Date: 20050422
  Receipt Date: 20050408
  Transmission Date: 20051028
  Serious: Yes (Other)
  Sender: FDA-Public Use
  Company Number: 050031

PATIENT
  Age: 52 Year
  Sex: Female
  Weight: 77.1115 kg

DRUGS (3)
  1. HALFLYTELY [Suspect]
     Indication: COLONOSCOPY
     Dosage: 20 MG, 1X, PO
     Route: 048
     Dates: start: 20050328
  2. CALCIUM GLUCONATE [Concomitant]
  3. ALEVE(OCCASIONALLY) [Concomitant]

REACTIONS (3)
  - LOSS OF CONSCIOUSNESS [None]
  - SKIN INJURY [None]
  - SYNCOPE [None]
